FAERS Safety Report 7765906-4 (Version None)
Quarter: 2011Q3

REPORT INFORMATION
  Report Type: 
  Country: None (occurrence: None)
  Receive Date: 20110921
  Receipt Date: 20110624
  Transmission Date: 20111222
  Serious: No
  Sender: FDA-Public Use
  Company Number: US-BAYER-2011-062078

PATIENT

DRUGS (1)
  1. NAPROXEN SODIUM [Suspect]

REACTIONS (1)
  - GASTRIC DISORDER [None]
